FAERS Safety Report 6143645-3 (Version None)
Quarter: 2009Q2

REPORT INFORMATION
  Report Type: 
  Country: None (occurrence: None)
  Receive Date: 20090403
  Receipt Date: 20090320
  Transmission Date: 20091009
  Serious: Yes (Other)
  Sender: FDA-Public Use
  Company Number: TW-ROCHE-622968

PATIENT
  Age: 62 Year
  Sex: Female

DRUGS (4)
  1. PEGASYS [Suspect]
     Route: 058
     Dates: start: 20020123, end: 20020614
  2. PEGASYS [Suspect]
     Route: 058
     Dates: start: 20050531
  3. PEGASYS [Suspect]
     Dosage: CONTINUED FOR SIX MONTHS
     Route: 058
     Dates: start: 20050701
  4. RIBAVIRIN [Suspect]
     Route: 048

REACTIONS (3)
  - CATARACT [None]
  - HEPATITIS C [None]
  - RETINOPATHY [None]
